FAERS Safety Report 23469244 (Version 1)
Quarter: 2024Q1

REPORT INFORMATION
  Report Type: Spontaneous
  Country: CN (occurrence: CN)
  Receive Date: 20240202
  Receipt Date: 20240202
  Transmission Date: 20240410
  Serious: Yes (Hospitalization)
  Sender: FDA-Public Use
  Company Number: CN-ORGANON-O2401CHN001600

PATIENT
  Age: 30 Year
  Sex: Female

DRUGS (1)
  1. NASONEX [Suspect]
     Active Substance: MOMETASONE FUROATE
     Dosage: 1 DOSAGE FORM, QD (AT BEDTIME)

REACTIONS (3)
  - Foetal malposition [Unknown]
  - Swelling face [Unknown]
  - Exposure during pregnancy [Unknown]
